FAERS Safety Report 6596078-X (Version None)
Quarter: 2010Q1

REPORT INFORMATION
  Report Type: 
  Country: None (occurrence: None)
  Receive Date: 20100223
  Receipt Date: 20100209
  Transmission Date: 20100710
  Serious: Yes (Other)
  Sender: FDA-Public Use
  Company Number: IT-CELGENEUS-083-20785-10011791

PATIENT

DRUGS (10)
  1. THALIDOMIDE [Suspect]
     Route: 048
  2. THALIDOMIDE [Suspect]
     Route: 048
  3. THALIDOMIDE [Suspect]
     Indication: THYROID CANCER
  4. THALIDOMIDE [Suspect]
     Indication: NEUROENDOCRINE TUMOUR
  5. THALIDOMIDE [Suspect]
     Indication: PROSTATE CANCER
  6. THALIDOMIDE [Suspect]
  7. THALIDOMIDE [Suspect]
  8. THALIDOMIDE [Suspect]
  9. INTERFERON [Suspect]
     Dosage: 0.5 MILLION IU
     Route: 058
  10. CELECOXIB [Suspect]
     Route: 048

REACTIONS (16)
  - ANAEMIA [None]
  - ASTHENIA [None]
  - BLOOD CREATININE ABNORMAL [None]
  - BLOOD UREA ABNORMAL [None]
  - CONSTIPATION [None]
  - DEEP VEIN THROMBOSIS [None]
  - DIARRHOEA [None]
  - DYSPNOEA [None]
  - HEPATOTOXICITY [None]
  - LEUKOPENIA [None]
  - NAUSEA [None]
  - NEUTROPENIA [None]
  - PLATELET COUNT DECREASED [None]
  - POLYNEUROPATHY [None]
  - SKIN TOXICITY [None]
  - STOMATITIS [None]
